FAERS Safety Report 4357991-7 (Version None)
Quarter: 2004Q2

REPORT INFORMATION
  Report Type: 
  Country: None (occurrence: None)
  Receive Date: 20040510
  Receipt Date: 20040503
  Transmission Date: 20050107
  Serious: Yes (Death, Hospitalization)
  Sender: FDA-Public Use
  Company Number: 2004UW09033

PATIENT
  Age: 70 Year
  Sex: Male
  Weight: 45.3597 kg

DRUGS (1)
  1. IRESSA [Suspect]
     Indication: NON-SMALL CELL LUNG CANCER

REACTIONS (6)
  - ASTHENIA [None]
  - MALIGNANT NEOPLASM PROGRESSION [None]
  - MALNUTRITION [None]
  - NON-SMALL CELL LUNG CANCER [None]
  - PYREXIA [None]
  - WEIGHT DECREASED [None]
